FAERS Safety Report 8230202-8 (Version None)
Quarter: 2012Q1

REPORT INFORMATION
  Report Type: 
  Country: None (occurrence: None)
  Receive Date: 20120321
  Receipt Date: 20120321
  Transmission Date: 20120608
  Serious: No
  Sender: FDA-Public Use
  Company Number: None

PATIENT
  Sex: Female

DRUGS (1)
  1. REVATIO [Suspect]
     Dosage: CAREMARK DOES NOT PROVIDE  PO
     Route: 048
     Dates: start: 20090201

REACTIONS (1)
  - CHILLS [None]
